FAERS Safety Report 4616705-3 (Version None)
Quarter: 2005Q1

REPORT INFORMATION
  Report Type: 
  Country: None (occurrence: None)
  Receive Date: 20050321
  Receipt Date: 20050307
  Transmission Date: 20050727
  Serious: Yes (Disabling)
  Sender: FDA-Public Use
  Company Number: 2005AC00406

PATIENT
  Age: 71 Year
  Sex: Female

DRUGS (2)
  1. BUPIVACAINE [Suspect]
     Indication: NERVE ROOT COMPRESSION
  2. TRIAMCINOLONE [Suspect]
     Indication: NERVE ROOT COMPRESSION

REACTIONS (4)
  - NERVE ROOT COMPRESSION [None]
  - PARAPLEGIA [None]
  - SENSORY LOSS [None]
  - SPINAL CORD INFARCTION [None]
